FAERS Safety Report 6747557-3 (Version None)
Quarter: 2010Q2

REPORT INFORMATION
  Report Type: 
  Country: None (occurrence: None)
  Receive Date: 20100528
  Receipt Date: 20100521
  Transmission Date: 20101027
  Serious: Yes (Other)
  Sender: FDA-Public Use
  Company Number: JP-JNJFOC-20100509439

PATIENT

DRUGS (4)
  1. RISPERDAL [Suspect]
     Indication: DRUG USE FOR UNKNOWN INDICATION
     Dosage: BEFORE BEDTIME
     Route: 048
  2. HUMULIN R [Concomitant]
     Route: 065
  3. HUMULIN 3/7 [Concomitant]
     Route: 065
  4. ELNEOPA NO 1 [Concomitant]
     Route: 065

REACTIONS (3)
  - CEREBRAL INFARCTION [None]
  - DIABETES MELLITUS [None]
  - DIZZINESS [None]
